FAERS Safety Report 7942013-9 (Version None)
Quarter: 2011Q4

REPORT INFORMATION
  Report Type: 
  Country: None (occurrence: None)
  Receive Date: 20111122
  Receipt Date: 20111108
  Transmission Date: 20120403
  Serious: Yes (Life-Threatening)
  Sender: FDA-Public Use
  Company Number: 0222776

PATIENT
  Sex: Male

DRUGS (1)
  1. TACHOSIL [Suspect]
     Indication: LYMPHOSTASIS
     Dosage: 1 SPONGE 9.5 CM X 4.8 CM
     Route: 061
     Dates: start: 20111027, end: 20111027

REACTIONS (2)
  - PULMONARY EMBOLISM [None]
  - JUGULAR VEIN THROMBOSIS [None]
